FAERS Safety Report 15345326 (Version 3)
Quarter: 2018Q4

REPORT INFORMATION
  Report Type: Report from Study
  Country: US (occurrence: US)
  Receive Date: 20180903
  Receipt Date: 20181012
  Transmission Date: 20190204
  Serious: No
  Sender: FDA-Public Use
  Company Number: US-ALEXION PHARMACEUTICALS INC.-A201811058

PATIENT
  Sex: Male
  Weight: 4.26 kg

DRUGS (1)
  1. KANUMA [Suspect]
     Active Substance: SEBELIPASE ALFA
     Indication: LYSOSOMAL ACID LIPASE DEFICIENCY
     Dosage: UNK, EVERY OTHER WEEK
     Route: 042

REACTIONS (3)
  - Contusion [Unknown]
  - Poor venous access [Unknown]
  - Weight increased [Unknown]
